FAERS Safety Report 4693776-X (Version None)
Quarter: 2005Q2

REPORT INFORMATION
  Report Type: 
  Country: None (occurrence: None)
  Receive Date: 20050616
  Receipt Date: 20050606
  Transmission Date: 20051028
  Serious: Yes (Other)
  Sender: FDA-Public Use
  Company Number: 2005084949

PATIENT
  Age: 75 Year
  Sex: Male

DRUGS (5)
  1. UNASYN [Suspect]
     Indication: BRONCHOPNEUMONIA
     Dosage: 6 GRAM (3 GRAM, BID), INTRAVENOUS
     Route: 042
     Dates: start: 20050529, end: 20050603
  2. CLINDAMYCIN PHOSPHATE [Suspect]
     Indication: BRONCHOPNEUMONIA
     Dosage: 600 MG (300 MG, BID), INTRAVENOUS
     Route: 042
     Dates: start: 20050602, end: 20050603
  3. CLARITHROMYCIN [Concomitant]
  4. MUCOSOLVA (AMBROXOL HYDROCHLORIDE) [Concomitant]
  5. MAGNESIUM OXIDE (MAGNEXIUM OXIDE) [Concomitant]

REACTIONS (2)
  - INTERSTITIAL LUNG DISEASE [None]
  - PULMONARY ALVEOLAR HAEMORRHAGE [None]
